FAERS Safety Report 8825197 (Version 3)
Quarter: 2012Q4

REPORT INFORMATION
  Report Type: 
  Country: US (occurrence: US)
  Receive Date: 20121004
  Receipt Date: 20121120
  Transmission Date: 20130627
  Serious: Yes (Death, Hospitalization, Other)
  Sender: FDA-Public Use
  Company Number: US-ROCHE-1130163

PATIENT
  Age: 56 Year
  Sex: Male

DRUGS (8)
  1. RITUXAN [Suspect]
     Indication: LYMPHOMA
     Route: 065
     Dates: start: 20091005, end: 20100810
  2. RITUXAN [Suspect]
     Indication: OFF LABEL USE
  3. METHADONE [Concomitant]
  4. MILK OF MAGNESIA [Concomitant]
  5. GEMCITABINE [Concomitant]
  6. ALEVE [Concomitant]
     Route: 065
  7. CIPROFLOXACIN [Concomitant]
     Route: 048
  8. HYDROCODONE BITARTRATE [Concomitant]
     Route: 048

REACTIONS (20)
  - Death [Fatal]
  - Anaemia [Unknown]
  - Hypokalaemia [Unknown]
  - Anxiety [Unknown]
  - Bipolar disorder [Unknown]
  - Gastric ulcer [Unknown]
  - Haemorrhage [Unknown]
  - Fatigue [Unknown]
  - Pain [Unknown]
  - Night sweats [Unknown]
  - Treatment failure [Unknown]
  - Hot flush [Unknown]
  - Sinus congestion [Unknown]
  - Cough [Unknown]
  - Dyspnoea [Unknown]
  - Nausea [Unknown]
  - Vomiting [Unknown]
  - Fluid overload [Unknown]
  - Oedema peripheral [Unknown]
  - Lymphoma [Unknown]
